FAERS Safety Report 15204504 (Version 1)
Quarter: 2018Q3

REPORT INFORMATION
  Report Type: Report from Study
  Country: IT (occurrence: IT)
  Receive Date: 20180726
  Receipt Date: 20180726
  Transmission Date: 20181010
  Serious: Yes (Hospitalization)
  Sender: FDA-Public Use
  Company Number: IT-MYLANLABS-2018M1055193

PATIENT
  Age: 11 Year
  Sex: Male
  Weight: 42 kg

DRUGS (1)
  1. ZOLPIDEM [Suspect]
     Active Substance: ZOLPIDEM\ZOLPIDEM TARTRATE
     Indication: PRODUCT USED FOR UNKNOWN INDICATION
     Dosage: 25 GTT, TOTAL
     Route: 048
     Dates: start: 20180204, end: 20180204

REACTIONS (4)
  - Adverse event [Recovering/Resolving]
  - Medication error [Recovering/Resolving]
  - Tachycardia [Recovering/Resolving]
  - Product use issue [Recovering/Resolving]

NARRATIVE: CASE EVENT DATE: 20180204
